FAERS Safety Report 14583527 (Version 1)
Quarter: 2018Q1

REPORT INFORMATION
  Report Type: Spontaneous
  Country: US (occurrence: US)
  Receive Date: 20180227
  Receipt Date: 20180227
  Transmission Date: 20180509
  Serious: Yes (Life-Threatening)
  Sender: FDA-Public Use
  Company Number: None

PATIENT
  Age: 46 Year
  Sex: Female
  Weight: 66 kg

DRUGS (2)
  1. LISINOPRIL. [Suspect]
     Active Substance: LISINOPRIL
     Route: 048
     Dates: start: 20180126, end: 20180126
  2. VENOFER [Suspect]
     Active Substance: IRON SUCROSE
     Indication: ANAEMIA
     Dosage: 200 MG MILLIGRAM(S) INTRAVENOUS (NOT OTHERWISE SPECIFIED)
     Route: 042
     Dates: start: 20180124, end: 20180126

REACTIONS (5)
  - Vomiting [None]
  - Swelling face [None]
  - Nausea [None]
  - Angioedema [None]
  - Infusion related reaction [None]

NARRATIVE: CASE EVENT DATE: 20180126
